FAERS Safety Report 6178421-9 (Version None)
Quarter: 2009Q2

REPORT INFORMATION
  Report Type: 
  Country: None (occurrence: None)
  Receive Date: 20090504
  Receipt Date: 20090424
  Transmission Date: 20091009
  Serious: Yes (Life-Threatening, Hospitalization)
  Sender: FDA-Public Use
  Company Number: GR-AMGEN-UK308871

PATIENT
  Age: 50 Year
  Sex: Male

DRUGS (3)
  1. VECTIBIX [Suspect]
     Indication: COLORECTAL CANCER
     Route: 042
     Dates: start: 20080904, end: 20080904
  2. FLUOROURACIL [Concomitant]
     Route: 065
     Dates: start: 20080904, end: 20080904
  3. ERBITUX [Concomitant]
     Route: 065

REACTIONS (1)
  - RASH MACULO-PAPULAR [None]
